FAERS Safety Report 17284218 (Version 1)
Quarter: 2020Q1

REPORT INFORMATION
  Report Type: Spontaneous
  Country: US (occurrence: US)
  Receive Date: 20200117
  Receipt Date: 20200117
  Transmission Date: 20200409
  Serious: Yes (Hospitalization, Other)
  Sender: FDA-Public Use
  Company Number: US-COSETTE PHARMACEUTICALS, INC.-GW2020US000001

PATIENT

DRUGS (1)
  1. ACETAMINOPHEN. [Suspect]
     Active Substance: ACETAMINOPHEN
     Indication: PRODUCT USED FOR UNKNOWN INDICATION
     Dosage: 60 TABLETS
     Route: 048

REACTIONS (3)
  - Overdose [Recovering/Resolving]
  - Lethargy [Recovering/Resolving]
  - Drug screen positive [Recovering/Resolving]
